FAERS Safety Report 4524937-8 (Version None)
Quarter: 2004Q4

REPORT INFORMATION
  Report Type: 
  Country: None (occurrence: None)
  Receive Date: 20041210
  Receipt Date: 20041202
  Transmission Date: 20050328
  Serious: Yes (Hospitalization)
  Sender: FDA-Public Use
  Company Number: 20041200498

PATIENT

DRUGS (1)
  1. MIDAZOLAM HYDROCHLORIDE [Suspect]
     Dates: start: 20041130, end: 20041130

REACTIONS (6)
  - DYSSTASIA [None]
  - MOVEMENT DISORDER [None]
  - MUSCLE TIGHTNESS [None]
  - PAIN [None]
  - THROAT TIGHTNESS [None]
  - TREMOR [None]
